FAERS Safety Report 6890942-X (Version None)
Quarter: 2010Q3

REPORT INFORMATION
  Report Type: 
  Country: None (occurrence: None)
  Receive Date: 20100731
  Receipt Date: 20090417
  Transmission Date: 20110219
  Serious: No
  Sender: FDA-Public Use
  Company Number: US-PFIZER INC-2009176636

PATIENT
  Sex: Male
  Weight: 111.13 kg

DRUGS (9)
  1. LIPITOR [Suspect]
     Indication: HYPERCHOLESTEROLAEMIA
     Dosage: 40 MG, 1X/DAY
  2. METFORMIN HCL [Suspect]
  3. WARFARIN [Concomitant]
  4. HYDROCHLOROTHIAZIDE [Concomitant]
  5. EFFEXOR [Concomitant]
  6. PLAVIX [Concomitant]
  7. DIGOXIN [Concomitant]
  8. COZAAR [Concomitant]
  9. COREG [Concomitant]

REACTIONS (1)
  - RASH PRURITIC [None]
